FAERS Safety Report 16739469 (Version 1)
Quarter: 2019Q3

REPORT INFORMATION
  Report Type: Report from Study
  Country: US (occurrence: US)
  Receive Date: 20190826
  Receipt Date: 20190826
  Transmission Date: 20191005
  Serious: Yes (Hospitalization)
  Sender: FDA-Public Use
  Company Number: US-ROCHE-2380881

PATIENT
  Age: 66 Year
  Sex: Male
  Weight: 81.72 kg

DRUGS (5)
  1. OCREVUS [Suspect]
     Active Substance: OCRELIZUMAB
     Indication: PRIMARY PROGRESSIVE MULTIPLE SCLEROSIS
     Dosage: THERAPY DETAILS: STARTED AUG/2016 OR AUG/2017 ;ONGOING: YES
     Route: 042
  2. CARVEDILOL. [Concomitant]
     Active Substance: CARVEDILOL
     Dosage: THERAPY DETAILS: STARTED 6  TO 7 YEARS AGO ;ONGOING: YES
     Route: 048
  3. OCREVUS [Suspect]
     Active Substance: OCRELIZUMAB
     Route: 042
  4. LOSARTAN. [Concomitant]
     Active Substance: LOSARTAN
     Dosage: THERAPY DETAILS: REDUCED IN JUN 2019 ;ONGOING: NO
     Route: 048
     Dates: end: 201906
  5. LOSARTAN. [Concomitant]
     Active Substance: LOSARTAN
     Dosage: THERAPY DETAILS ONGOING :YES
     Route: 048

REACTIONS (5)
  - Amnesia [Recovered/Resolved]
  - Asthenia [Not Recovered/Not Resolved]
  - Fall [Not Recovered/Not Resolved]
  - Urinary tract infection [Recovered/Resolved]
  - Blood pressure decreased [Recovered/Resolved]

NARRATIVE: CASE EVENT DATE: 201710
